FAERS Safety Report 7390509-3 (Version None)
Quarter: 2011Q2

REPORT INFORMATION
  Report Type: 
  Country: None (occurrence: None)
  Receive Date: 20110402
  Receipt Date: 20110330
  Transmission Date: 20111010
  Serious: Yes (Other)
  Sender: FDA-Public Use
  Company Number: TR-BRISTOL-MYERS SQUIBB COMPANY-14348775

PATIENT
  Age: 55 Year
  Sex: Male
  Weight: 70 kg

DRUGS (3)
  1. PERINDOPRIL [Concomitant]
     Dosage: 1 DF:10 MG + 1.25 MG
     Route: 048
  2. BARACLUDE [Suspect]
     Indication: HEPATITIS B
     Dosage: DRUG CONTINUED
     Route: 048
     Dates: start: 20080101
  3. INDAPAMID [Concomitant]

REACTIONS (1)
  - GYNAECOMASTIA [None]
